FAERS Safety Report 6681469-9 (Version None)
Quarter: 2010Q2

REPORT INFORMATION
  Report Type: 
  Country: None (occurrence: None)
  Receive Date: 20100414
  Receipt Date: 20100406
  Transmission Date: 20101027
  Serious: Yes (Hospitalization)
  Sender: FDA-Public Use
  Company Number: GR-JNJFOC-20100401544

PATIENT
  Age: 82 Year
  Sex: Female

DRUGS (1)
  1. ALOPERIDIN [Suspect]
     Indication: DEMENTIA
     Dosage: DROPS
     Route: 048

REACTIONS (3)
  - DYSPHAGIA [None]
  - MUSCULOSKELETAL STIFFNESS [None]
  - PYREXIA [None]
